FAERS Safety Report 5794300-0 (Version None)
Quarter: 2008Q2

REPORT INFORMATION
  Report Type: 
  Country: None (occurrence: None)
  Receive Date: 20080625
  Receipt Date: 20080622
  Transmission Date: 20081010
  Serious: Yes (Other)
  Sender: FDA-Public Use
  Company Number: 029529

PATIENT
  Age: 23 Year
  Sex: Female
  Weight: 56.7 kg

DRUGS (1)
  1. PLAN B [Suspect]
     Indication: CONTRACEPTION
     Dosage: 1 TABLET,ORAL
     Route: 048
     Dates: start: 20080621, end: 20080622

REACTIONS (2)
  - DYSPNOEA [None]
  - LOSS OF CONSCIOUSNESS [None]
